FAERS Safety Report 21939279 (Version 1)
Quarter: 2023Q1

REPORT INFORMATION
  Report Type: Report from Study
  Country: US (occurrence: US)
  Receive Date: 20230201
  Receipt Date: 20230201
  Transmission Date: 20230418
  Serious: Yes (Hospitalization)
  Sender: FDA-Public Use
  Company Number: US-EXELIXIS-CABO-22055663

PATIENT
  Age: 54 Year
  Sex: Male
  Weight: 87 kg

DRUGS (6)
  1. CABOMETYX [Suspect]
     Active Substance: CABOZANTINIB S-MALATE
     Indication: Renal cancer
     Dosage: 40 MG, QD
     Route: 048
     Dates: start: 20220421
  2. CABOMETYX [Suspect]
     Active Substance: CABOZANTINIB S-MALATE
     Dosage: UNK
  3. LENVIMA [Concomitant]
     Active Substance: LENVATINIB
  4. EVEROLIMUS [Concomitant]
     Active Substance: EVEROLIMUS
  5. TRESIBA [Concomitant]
     Active Substance: INSULIN DEGLUDEC
  6. NOVOLOG [Concomitant]
     Active Substance: INSULIN ASPART

REACTIONS (4)
  - Abdominal pain [Not Recovered/Not Resolved]
  - Nausea [Not Recovered/Not Resolved]
  - Vomiting [Not Recovered/Not Resolved]
  - Constipation [Not Recovered/Not Resolved]

NARRATIVE: CASE EVENT DATE: 20220901
